FAERS Safety Report 4801555-5 (Version None)
Quarter: 2005Q4

REPORT INFORMATION
  Report Type: 
  Country: None (occurrence: None)
  Receive Date: 20051011
  Receipt Date: 20051011
  Transmission Date: 20060501
  Serious: Yes (Other)
  Sender: FDA-Public Use
  Company Number: None

PATIENT
  Age: 59 Year
  Sex: Female
  Weight: 168.7381 kg

DRUGS (2)
  1. ZOCOR [Suspect]
     Indication: HYPERCHOLESTEROLAEMIA
     Dosage: 40 MG ONE PO DAILY
     Route: 048
     Dates: start: 20050623, end: 20050913
  2. LIPITOR [Concomitant]

REACTIONS (2)
  - HEADACHE [None]
  - MYALGIA [None]
